FAERS Safety Report 20876570 (Version 1)
Quarter: 2022Q2

REPORT INFORMATION
  Report Type: Spontaneous
  Country: US (occurrence: US)
  Receive Date: 20220526
  Receipt Date: 20220526
  Transmission Date: 20220720
  Serious: Yes (Hospitalization)
  Sender: FDA-Public Use
  Company Number: US-STRIDES ARCOLAB LIMITED-2021SP026722

PATIENT
  Age: 6 Decade
  Sex: Male

DRUGS (9)
  1. VANCOMYCIN [Suspect]
     Active Substance: VANCOMYCIN
     Indication: Staphylococcal bacteraemia
     Dosage: UNK
     Route: 065
  2. VANCOMYCIN [Suspect]
     Active Substance: VANCOMYCIN
     Indication: Osteomyelitis
  3. DAPTOMYCIN [Suspect]
     Active Substance: DAPTOMYCIN
     Indication: Staphylococcal bacteraemia
     Dosage: UNK
     Route: 065
  4. DAPTOMYCIN [Suspect]
     Active Substance: DAPTOMYCIN
     Indication: Osteomyelitis
     Dosage: UNK; DAILY INFUSIONS OF HIGH-DOSE (} 10 MG/KG)
     Route: 065
  5. CEFTAROLINE FOSAMIL [Suspect]
     Active Substance: CEFTAROLINE FOSAMIL
     Indication: Staphylococcal bacteraemia
     Dosage: UNK
     Route: 065
  6. CEFTAROLINE FOSAMIL [Suspect]
     Active Substance: CEFTAROLINE FOSAMIL
     Indication: Osteomyelitis
     Dosage: UNK
     Route: 065
  7. CEFTAROLINE FOSAMIL [Suspect]
     Active Substance: CEFTAROLINE FOSAMIL
     Dosage: UNK; PATIENT REMAINED ADMITTED TO COMPLETE A 6-WEEK COURSE
     Route: 065
  8. ORITAVANCIN [Suspect]
     Active Substance: ORITAVANCIN
     Indication: Staphylococcal bacteraemia
     Dosage: 1200 MILLIGRAM, RECEIVED TWO INFUSIONS
     Route: 065
  9. ORITAVANCIN [Suspect]
     Active Substance: ORITAVANCIN
     Indication: Osteomyelitis

REACTIONS (2)
  - Treatment failure [Unknown]
  - Off label use [Unknown]
